FAERS Safety Report 6630891-5 (Version None)
Quarter: 2010Q1

REPORT INFORMATION
  Report Type: 
  Country: None (occurrence: None)
  Receive Date: 20100311
  Receipt Date: 20100303
  Transmission Date: 20100710
  Serious: Yes (Hospitalization)
  Sender: FDA-Public Use
  Company Number: US-BAXTER-2010BH004669

PATIENT
  Age: 55 Year
  Sex: Female

DRUGS (2)
  1. DIANEAL [Suspect]
     Indication: PERITONEAL DIALYSIS
     Dates: start: 20090101, end: 20100119
  2. MEDICATION [Concomitant]
     Indication: PAIN
     Route: 048

REACTIONS (3)
  - AZOTAEMIA [None]
  - CONFUSIONAL STATE [None]
  - MEDICAL DEVICE COMPLICATION [None]
